FAERS Safety Report 17613164 (Version 3)
Quarter: 2020Q2

REPORT INFORMATION
  Report Type: Report from Study
  Country: AU (occurrence: AU)
  Receive Date: 20200402
  Receipt Date: 20200430
  Transmission Date: 20200713
  Serious: Yes (Hospitalization, Other)
  Sender: FDA-Public Use
  Company Number: AU-AMGEN-AUSSL2020051988

PATIENT
  Age: 80 Year
  Sex: Female

DRUGS (1)
  1. REPATHA [Suspect]
     Active Substance: EVOLOCUMAB
     Indication: TYPE IIA HYPERLIPIDAEMIA
     Dosage: 140 MILLIGRAM, Q2WK
     Route: 058
     Dates: start: 20191223

REACTIONS (6)
  - Fall [Unknown]
  - Skin laceration [Unknown]
  - Macular degeneration [Not Recovered/Not Resolved]
  - Facial bones fracture [Unknown]
  - Limb injury [Unknown]
  - Retinal haemorrhage [Unknown]

NARRATIVE: CASE EVENT DATE: 202003
